FAERS Safety Report 4920661-8 (Version None)
Quarter: 2006Q1

REPORT INFORMATION
  Report Type: 
  Country: None (occurrence: None)
  Receive Date: 20060217
  Receipt Date: 20060210
  Transmission Date: 20060701
  Serious: Yes (Other)
  Sender: FDA-Public Use
  Company Number: S06-USA-00149-01

PATIENT
  Age: 40 Year
  Sex: Female

DRUGS (12)
  1. NAMENDA [Suspect]
     Indication: AMNESIA
     Dosage: 10 MG QD PO
     Route: 048
     Dates: start: 20060101, end: 20060131
  2. NAMENDA [Suspect]
     Indication: AMNESIA
     Dosage: 15 MG QD PO
     Route: 048
     Dates: start: 20051227, end: 20060102
  3. NAMENDA [Suspect]
     Indication: AMNESIA
     Dosage: 10 MG BID PO
     Route: 048
     Dates: start: 20060103, end: 20060109
  4. NAMENDA [Suspect]
     Indication: AMNESIA
     Dosage: 5 MG QD PO
     Route: 048
     Dates: start: 20051213, end: 20051219
  5. NAMENDA [Suspect]
     Indication: AMNESIA
     Dosage: 5 MG BID PO
     Route: 048
     Dates: start: 20051220, end: 20051226
  6. NAMENDA [Suspect]
     Indication: AMNESIA
     Dosage: 5 MG QD PO
     Route: 048
     Dates: start: 20060101, end: 20060101
  7. NAMENDA [Suspect]
     Indication: AMNESIA
     Dosage: 5 MG BID PO
     Route: 048
     Dates: start: 20060101, end: 20060101
  8. NAMENDA [Suspect]
     Indication: AMNESIA
     Dosage: 15 MG QD PO
     Route: 048
     Dates: start: 20060101, end: 20060101
  9. NAMENDA [Suspect]
     Indication: AMNESIA
     Dosage: 10 MG BID PO
     Route: 048
     Dates: start: 20060101, end: 20060101
  10. LEXAPRO [Suspect]
     Indication: ANXIETY
     Dosage: 10 MG QD PO
     Route: 048
  11. LEXAPRO [Suspect]
     Indication: DEPRESSION
     Dosage: 10 MG QD PO
     Route: 048
  12. RISPERDAL [Concomitant]

REACTIONS (13)
  - ANTICONVULSANT DRUG LEVEL DECREASED [None]
  - BLOOD CREATINE PHOSPHOKINASE MB INCREASED [None]
  - BLOOD GLUCOSE DECREASED [None]
  - BRAIN NATRIURETIC PEPTIDE DECREASED [None]
  - CYST [None]
  - ELECTROENCEPHALOGRAM ABNORMAL [None]
  - GRAND MAL CONVULSION [None]
  - GRANULOCYTE COUNT INCREASED [None]
  - MONOCYTE COUNT INCREASED [None]
  - MYOGLOBIN BLOOD INCREASED [None]
  - SCREAMING [None]
  - SINUS DISORDER [None]
  - WHITE BLOOD CELL COUNT INCREASED [None]
